FAERS Safety Report 4876470-1 (Version None)
Quarter: 2005Q4

REPORT INFORMATION
  Report Type: 
  Country: None (occurrence: None)
  Receive Date: 20051206
  Receipt Date: 20051004
  Transmission Date: 20060501
  Serious: No
  Sender: FDA-Public Use
  Company Number: USA0510110037

PATIENT
  Age: 65 Year
  Sex: Female

DRUGS (5)
  1. CYMBALTA [Suspect]
     Indication: ANXIETY
     Dosage: 30 MG/1 DAY
     Dates: start: 20050928
  2. CELEBREX [Concomitant]
  3. ATENOLOL [Concomitant]
  4. DIOVAN [Concomitant]
  5. PREVACID [Concomitant]

REACTIONS (3)
  - COUGH [None]
  - NAUSEA [None]
  - RETCHING [None]
